FAERS Safety Report 10369443 (Version 2)
Quarter: 2015Q1

REPORT INFORMATION
  Report Type: Spontaneous
  Country: CN (occurrence: CN)
  Receive Date: 20140807
  Receipt Date: 20150128
  Transmission Date: 20150720
  Serious: Yes (Death, Life-Threatening, Hospitalization, Other)
  Sender: FDA-Public Use
  Company Number: CN-ASTRAZENECA-2014SE56391

PATIENT
  Age: 2921 Day
  Sex: Male
  Weight: 21 kg

DRUGS (10)
  1. COMPOUND DEXTROMETHORPHAN HYDROBROMIDE [Concomitant]
     Indication: SUPPORTIVE CARE
  2. VITAMIN C [Concomitant]
     Active Substance: ASCORBIC ACID
     Indication: SUPPORTIVE CARE
     Route: 041
     Dates: start: 20131212, end: 20131212
  3. DEXAMETHASONE. [Concomitant]
     Active Substance: DEXAMETHASONE
     Dosage: INJECTION 2.5MG BY AEROSOL INHALATION
  4. CEFOTIAM HYDROCHLORIDE [Suspect]
     Active Substance: CEFOTIAM HYDROCHLORIDE
     Indication: BRONCHOPNEUMONIA
     Route: 041
     Dates: start: 20131211, end: 20131212
  5. AMBROXOL HYDROCHLORIDE [Suspect]
     Active Substance: AMBROXOL HYDROCHLORIDE
     Indication: SUPPORTIVE CARE
     Route: 055
     Dates: start: 20131212, end: 20131212
  6. SODIUM CHLORIDE. [Concomitant]
     Active Substance: SODIUM CHLORIDE
     Indication: MEDICATION DILUTION
     Route: 055
     Dates: start: 20131211, end: 20131212
  7. AMBROXOL HYDROCHLORIDE [Suspect]
     Active Substance: AMBROXOL HYDROCHLORIDE
     Indication: SUPPORTIVE CARE
     Route: 041
     Dates: start: 20131211, end: 20131212
  8. BUDESONIDE. [Suspect]
     Active Substance: BUDESONIDE
     Indication: SUPPORTIVE CARE
     Route: 055
     Dates: start: 20131212, end: 20131212
  9. RIBAVIRIN. [Suspect]
     Active Substance: RIBAVIRIN
     Indication: SUPPORTIVE CARE
     Route: 041
     Dates: start: 20131211, end: 20131212
  10. RIBAVIRIN. [Suspect]
     Active Substance: RIBAVIRIN
     Indication: SUPPORTIVE CARE
     Route: 041
     Dates: start: 20131212, end: 20131212

REACTIONS (8)
  - Pulmonary oedema [Fatal]
  - Anaphylactic shock [Fatal]
  - Pulseless electrical activity [Unknown]
  - Sinus tachycardia [Unknown]
  - Ventricular fibrillation [Unknown]
  - Laryngeal oedema [Unknown]
  - Bronchopneumonia [Unknown]
  - Dysphoria [Unknown]

NARRATIVE: CASE EVENT DATE: 20131211
